FAERS Safety Report 13247834 (Version 4)
Quarter: 2017Q1

REPORT INFORMATION
  Report Type: Spontaneous
  Country: CA (occurrence: CA)
  Receive Date: 20170217
  Receipt Date: 20170316
  Transmission Date: 20170428
  Serious: Yes (Hospitalization, Other)
  Sender: FDA-Public Use
  Company Number: CA-SAOL THERAPEUTICS-2017SAO00313

PATIENT

DRUGS (2)
  1. BACLOFEN. [Suspect]
     Active Substance: BACLOFEN
     Dosage: 65.87 ?G, \DAY
     Route: 037
  2. BACLOFEN. [Suspect]
     Active Substance: BACLOFEN
     Dosage: 67 ?G, \DAY
     Route: 037

REACTIONS (11)
  - Constipation [Not Recovered/Not Resolved]
  - Paraesthesia [None]
  - Muscle spasticity [Not Recovered/Not Resolved]
  - Intervertebral disc degeneration [None]
  - Thermal burn [Unknown]
  - Pain in extremity [Unknown]
  - Myocardial infarction [Unknown]
  - Debridement [Unknown]
  - Withdrawal syndrome [Not Recovered/Not Resolved]
  - Decubitus ulcer [Unknown]
  - Hyperhidrosis [Not Recovered/Not Resolved]

NARRATIVE: CASE EVENT DATE: 201612
